FAERS Safety Report 19510628 (Version 4)
Quarter: 2021Q3

REPORT INFORMATION
  Report Type: Spontaneous
  Country: GB (occurrence: GB)
  Receive Date: 20210708
  Receipt Date: 20210727
  Transmission Date: 20211014
  Serious: No
  Sender: FDA-Public Use
  Company Number: GB-JNJFOC-20210648590

PATIENT
  Age: 57 Year
  Sex: Female

DRUGS (1)
  1. SIMPONI [Suspect]
     Active Substance: GOLIMUMAB
     Indication: PSORIATIC ARTHROPATHY
     Dosage: 100.00 MG/ML
     Route: 058

REACTIONS (4)
  - Underdose [Unknown]
  - Device deployment issue [Unknown]
  - Arthritis [Unknown]
  - Product packaging issue [Unknown]
